FAERS Safety Report 7528202-6 (Version None)
Quarter: 2011Q2

REPORT INFORMATION
  Report Type: 
  Country: None (occurrence: None)
  Receive Date: 20110607
  Receipt Date: 20100917
  Transmission Date: 20111010
  Serious: No
  Sender: FDA-Public Use
  Company Number: US-ASTRAZENECA-2010SE45511

PATIENT
  Age: 60 Year
  Sex: Female

DRUGS (2)
  1. PRILOSEC [Suspect]
     Dosage: UNKNOWN
     Route: 048
  2. PRILOSEC OTC [Suspect]
     Dosage: UNKNOWN
     Route: 048

REACTIONS (2)
  - PNEUMONIA [None]
  - INCORRECT DRUG ADMINISTRATION DURATION [None]
